FAERS Safety Report 21771759 (Version 7)
Quarter: 2024Q1

REPORT INFORMATION
  Report Type: Spontaneous
  Country: JP (occurrence: JP)
  Receive Date: 20221223
  Receipt Date: 20240213
  Transmission Date: 20240410
  Serious: Yes (Other)
  Sender: FDA-Public Use
  Company Number: None

PATIENT

DRUGS (6)
  1. VOCABRIA [Suspect]
     Active Substance: CABOTEGRAVIR SODIUM
     Dosage: 600 MG
     Route: 030
     Dates: start: 20221213
  2. VOCABRIA [Suspect]
     Active Substance: CABOTEGRAVIR SODIUM
     Dosage: 600 MG
     Route: 030
  3. RILPIVIRINE [Suspect]
     Active Substance: RILPIVIRINE
     Dosage: 900 MG
     Route: 030
     Dates: start: 20221213
  4. TRIUMEQ [Concomitant]
     Active Substance: ABACAVIR SULFATE\DOLUTEGRAVIR SODIUM\LAMIVUDINE
     Dosage: UNK
  5. ATOMOXETINE HYDROCHLORIDE [Concomitant]
     Active Substance: ATOMOXETINE HYDROCHLORIDE
     Indication: Attention deficit hyperactivity disorder
     Dosage: UNK
  6. ZOLPIDEM TARTRATE [Concomitant]
     Active Substance: ZOLPIDEM TARTRATE
     Dosage: UNK

REACTIONS (14)
  - Injection site pain [Recovering/Resolving]
  - Myositis [Recovered/Resolved]
  - Injection site inflammation [Recovered/Resolved]
  - Injection site mass [Recovered/Resolved]
  - Drug-induced liver injury [Not Recovered/Not Resolved]
  - Acute hepatitis B [Recovered/Resolved]
  - Hepatitis E [Recovered/Resolved]
  - Jaundice [Recovered/Resolved]
  - Physical deconditioning [Unknown]
  - Nausea [Recovered/Resolved]
  - Hyperhidrosis [Recovered/Resolved]
  - Presyncope [Recovered/Resolved]
  - Tachycardia [Recovered/Resolved]
  - Abdominal distension [Recovered/Resolved]

NARRATIVE: CASE EVENT DATE: 20221213
